FAERS Safety Report 7769436-5 (Version None)
Quarter: 2011Q3

REPORT INFORMATION
  Report Type: 
  Country: None (occurrence: None)
  Receive Date: 20110922
  Receipt Date: 20110329
  Transmission Date: 20111222
  Serious: No
  Sender: FDA-Public Use
  Company Number: US-ASTRAZENECA-2011SE17937

PATIENT
  Age: 40 Year
  Sex: Female
  Weight: 86.2 kg

DRUGS (8)
  1. SEROQUEL XR [Suspect]
     Indication: BIPOLAR DISORDER
     Route: 048
  2. OVAR [Concomitant]
     Indication: ASTHMA
  3. SEROQUEL XR [Suspect]
     Indication: DEPRESSION
     Route: 048
  4. ALLEGRA [Concomitant]
     Indication: ASTHMA
  5. CELEXA [Concomitant]
     Indication: DEPRESSION
  6. CELEXA [Concomitant]
     Indication: ANXIETY
  7. VENTALIN [Concomitant]
     Indication: ASTHMA
     Dosage: AS REQUIRED
  8. SEREVENT [Concomitant]
     Indication: ASTHMA

REACTIONS (2)
  - UPPER LIMB FRACTURE [None]
  - FALL [None]
